FAERS Safety Report 5523742-3 (Version None)
Quarter: 2007Q4

REPORT INFORMATION
  Report Type: 
  Country: None (occurrence: None)
  Receive Date: 20071121
  Receipt Date: 20071115
  Transmission Date: 20080405
  Serious: Yes (Hospitalization, Other)
  Sender: FDA-Public Use
  Company Number: CA-ABBOTT-07P-028-0424992-00

PATIENT
  Sex: Female
  Weight: 104.5 kg

DRUGS (3)
  1. HUMIRA [Suspect]
     Indication: PSORIATIC ARTHROPATHY
     Route: 058
     Dates: start: 20061102
  2. PHENELZINE [Concomitant]
     Indication: DEPRESSION
     Route: 048
  3. ZOPICLONE [Concomitant]
     Indication: SLEEP DISORDER THERAPY
     Route: 048

REACTIONS (1)
  - DEPRESSION [None]
